FAERS Safety Report 9730611 (Version 2)
Quarter: 2013Q4

REPORT INFORMATION
  Report Type: Report from Study
  Country: US (occurrence: US)
  Receive Date: 20131205
  Receipt Date: 20131218
  Transmission Date: 20140711
  Serious: Yes (Death)
  Sender: FDA-Public Use
  Company Number: US-ROCHE-1312998

PATIENT
  Age: 53 Year
  Sex: Female

DRUGS (4)
  1. CATHFLO ACTIVASE [Suspect]
     Indication: PRODUCT USED FOR UNKNOWN INDICATION
     Route: 065
     Dates: start: 20130820
  2. DIAMOX [Concomitant]
     Route: 042
  3. BUMEX [Concomitant]
     Route: 042
  4. ENOXAPARIN [Concomitant]
     Route: 058

REACTIONS (1)
  - Death [Fatal]
